FAERS Safety Report 7832884-9 (Version None)
Quarter: 2011Q4

REPORT INFORMATION
  Report Type: 
  Country: None (occurrence: None)
  Receive Date: 20111024
  Receipt Date: 20111011
  Transmission Date: 20120403
  Serious: Yes (Hospitalization)
  Sender: FDA-Public Use
  Company Number: US-ELI_LILLY_AND_COMPANY-US201110000521

PATIENT
  Sex: Female

DRUGS (4)
  1. HUMATROPE [Suspect]
     Dosage: 0.70 MG, QD
  2. HUMATROPE [Suspect]
     Indication: GROWTH HORMONE DEFICIENCY
     Dosage: 0.20 MG, UNKNOWN
  3. HUMATROPE [Suspect]
     Dosage: 0.30 MG, UNKNOWN
  4. HUMATROPE [Suspect]
     Dosage: 0.70 MG, QD

REACTIONS (9)
  - VOMITING [None]
  - HYPOAESTHESIA [None]
  - MUSCULOSKELETAL PAIN [None]
  - VISUAL IMPAIRMENT [None]
  - GASTROENTERITIS VIRAL [None]
  - JOINT DISLOCATION [None]
  - DIARRHOEA [None]
  - INCORRECT DOSE ADMINISTERED [None]
  - ANAEMIA [None]
